FAERS Safety Report 22797520 (Version 3)
Quarter: 2024Q2

REPORT INFORMATION
  Report Type: Spontaneous
  Country: JP (occurrence: JP)
  Receive Date: 20230808
  Receipt Date: 20240617
  Transmission Date: 20240716
  Serious: Yes (Hospitalization, Other)
  Sender: FDA-Public Use
  Company Number: JP-ABBVIE-5358191

PATIENT
  Age: 51 Year
  Sex: Male

DRUGS (2)
  1. ASENAPINE [Suspect]
     Active Substance: ASENAPINE
     Indication: Product used for unknown indication
     Dosage: TABLETS UNFLAVOURED
     Route: 060
  2. OLANZAPINE [Suspect]
     Active Substance: OLANZAPINE
     Indication: Product used for unknown indication
     Route: 048

REACTIONS (7)
  - Hallucination, auditory [Unknown]
  - Femur fracture [Unknown]
  - Fall [Unknown]
  - Cholecystectomy [Unknown]
  - Delusion [Unknown]
  - Hallucination, visual [Unknown]
  - Condition aggravated [Unknown]
